FAERS Safety Report 7759453-3 (Version None)
Quarter: 2011Q3

REPORT INFORMATION
  Report Type: 
  Country: None (occurrence: None)
  Receive Date: 20110919
  Receipt Date: 20110912
  Transmission Date: 20111222
  Serious: Yes (Disabling)
  Sender: FDA-Public Use
  Company Number: US-ROCHE-801911

PATIENT
  Sex: Male
  Weight: 74.8 kg

DRUGS (6)
  1. MOXIFLOXACIN [Concomitant]
     Indication: INFECTION
     Dosage: 1 DROP IN AFFECTED EYE FOUR TIMES A DAY
     Route: 047
     Dates: end: 20110328
  2. ATROPINE SULFATE [Concomitant]
     Dosage: DOSE: 1 DROP IN LEFT EYE TWICE DAILY
     Route: 047
     Dates: end: 20110331
  3. AVASTIN [Suspect]
     Dosage: FREQUENCY: EVERY 4-6 WEEKS
     Route: 031
     Dates: start: 20100917, end: 20110329
  4. PREDNISOLONE [Concomitant]
     Dosage: DOSE: ONE DROP IN LEFT EYE FOUR TIMES A DAY
     Route: 047
     Dates: end: 20110331
  5. MOXIFLOXACIN [Concomitant]
     Dosage: TAKEN ONE TABLET BY MOUTH EVERY DAY AT NOON
     Route: 048
     Dates: end: 20110331
  6. DORZOLAMIDE [Concomitant]
     Indication: GLAUCOMA
     Dosage: 1 DROP IN INFECTED EYE TWICE DAILY
     Route: 047
     Dates: end: 20110331

REACTIONS (2)
  - ENDOPHTHALMITIS [None]
  - BLINDNESS [None]
